FAERS Safety Report 16299387 (Version 2)
Quarter: 2019Q3

REPORT INFORMATION
  Report Type: Report from Study
  Country: None (occurrence: NL)
  Receive Date: 20190510
  Receipt Date: 20190917
  Transmission Date: 20191004
  Serious: Yes (Other)
  Sender: FDA-Public Use
  Company Number: NL-ABBVIE-19K-114-2769920-00

PATIENT
  Age: 19 Year
  Sex: Female

DRUGS (2)
  1. HUMIRA [Suspect]
     Active Substance: ADALIMUMAB
     Route: 058
     Dates: start: 20190417
  2. HUMIRA [Suspect]
     Active Substance: ADALIMUMAB
     Indication: CROHN^S DISEASE
     Route: 058
     Dates: start: 20181016, end: 20190405

REACTIONS (9)
  - Fatigue [Unknown]
  - Post procedural inflammation [Recovered/Resolved]
  - Haemorrhage [Recovered/Resolved]
  - Oral herpes [Recovered/Resolved]
  - Abdominal pain [Recovered/Resolved]
  - Genital herpes [Recovering/Resolving]
  - Pharyngeal disorder [Unknown]
  - Diarrhoea [Recovered/Resolved]
  - Herpes virus infection [Recovering/Resolving]

NARRATIVE: CASE EVENT DATE: 2019
